FAERS Safety Report 10169313 (Version 3)
Quarter: 2014Q2

REPORT INFORMATION
  Report Type: Spontaneous
  Country: JP (occurrence: JP)
  Receive Date: 20140513
  Receipt Date: 20140609
  Transmission Date: 20141212
  Serious: No
  Sender: FDA-Public Use
  Company Number: JP-NOVOPROD-409333

PATIENT
  Age: 70 Year
  Sex: Female
  Weight: 42 kg

DRUGS (8)
  1. VICTOZA HIKACHU INJECTION [Suspect]
     Indication: TYPE 2 DIABETES MELLITUS
     Dosage: 0.3 MG, QD
     Route: 058
     Dates: start: 20110526
  2. VICTOZA HIKACHU INJECTION [Suspect]
     Dosage: 0.6 MG
     Route: 058
     Dates: start: 20110603
  3. VICTOZA HIKACHU INJECTION [Suspect]
     Dosage: 0.9 MG
     Route: 058
     Dates: start: 20110608, end: 201311
  4. LYXUMIA [Suspect]
     Indication: TYPE 2 DIABETES MELLITUS
     Dosage: 10 UG, QD
     Route: 065
     Dates: start: 201311
  5. LYXUMIA [Suspect]
     Dosage: 20 UG, QD
     Route: 065
  6. AMARYL [Concomitant]
     Dosage: 1 MG, QD
     Route: 048
     Dates: start: 20110526
  7. LANTUS [Concomitant]
     Indication: TYPE 2 DIABETES MELLITUS
     Dosage: 6 U, QD
     Route: 065
     Dates: start: 201311
  8. LANTUS [Concomitant]
     Dosage: 8 U
     Route: 065

REACTIONS (2)
  - Carbohydrate antigen 19-9 increased [Unknown]
  - Glycosylated haemoglobin increased [Unknown]
